FAERS Safety Report 9941555 (Version 2)
Quarter: 2014Q1

REPORT INFORMATION
  Report Type: Report from Study
  Country: US (occurrence: US)
  Receive Date: 20140303
  Receipt Date: 20140303
  Transmission Date: 20141002
  Serious: No
  Sender: FDA-Public Use
  Company Number: US-ABBVIE-12P-163-1014078-00

PATIENT
  Age: 55 Year
  Sex: Female

DRUGS (9)
  1. HUMIRA [Suspect]
     Indication: CROHN^S DISEASE
     Dates: start: 20121121
  2. PENTASA [Concomitant]
     Indication: CROHN^S DISEASE
  3. IMURAN [Concomitant]
     Indication: CROHN^S DISEASE
  4. PRILOSEC [Concomitant]
     Indication: GASTROINTESTINAL DISORDER
  5. PRILOSEC [Concomitant]
     Indication: DRUG ABUSE
  6. LOTREL [Concomitant]
     Indication: BLOOD PRESSURE
     Dosage: 2.5-10 MG DAILY
  7. VALTREX [Concomitant]
     Indication: HERPES ZOSTER
     Dates: start: 20121110
  8. MULTIVITAMIN [Concomitant]
     Indication: VITAMIN SUPPLEMENTATION
     Dosage: DAILY
  9. VITAMIN D [Concomitant]
     Indication: VITAMIN SUPPLEMENTATION
     Dosage: DAILY

REACTIONS (6)
  - Flank pain [Not Recovered/Not Resolved]
  - Injection site pain [Recovered/Resolved]
  - Muscle spasms [Unknown]
  - Injection site pain [Unknown]
  - Injection site mass [Unknown]
  - Injection site erythema [Unknown]
